FAERS Safety Report 11031672 (Version 2)
Quarter: 2015Q2

REPORT INFORMATION
  Report Type: Spontaneous
  Country: US (occurrence: US)
  Receive Date: 20150415
  Receipt Date: 20150630
  Transmission Date: 20150821
  Serious: No
  Sender: FDA-Public Use
  Company Number: US-TEVA-555402USA

PATIENT
  Age: 22 Year
  Sex: Female

DRUGS (1)
  1. PARAGARD T 380A [Suspect]
     Active Substance: COPPER
     Indication: CONTRACEPTION
     Route: 015
     Dates: start: 20140530, end: 20150325

REACTIONS (3)
  - Device expulsion [Recovered/Resolved]
  - Dyspareunia [Unknown]
  - Coital bleeding [Unknown]

NARRATIVE: CASE EVENT DATE: 20150325
